FAERS Safety Report 5424285-8 (Version None)
Quarter: 2007Q3

REPORT INFORMATION
  Report Type: 
  Country: None (occurrence: None)
  Receive Date: 20070823
  Receipt Date: 20070808
  Transmission Date: 20080115
  Serious: No
  Sender: FDA-Public Use
  Company Number: US-BOEHRINGER INGELHEIM PHARMACEUTICALS, INC.-2007-BP-18846BP

PATIENT
  Sex: Male

DRUGS (3)
  1. SPIRIVA [Suspect]
     Indication: BRONCHITIS
     Route: 055
     Dates: start: 20070805
  2. SPIRIVA [Suspect]
     Indication: ASTHMA
  3. ACIPHEX [Concomitant]
     Indication: GASTROOESOPHAGEAL REFLUX DISEASE

REACTIONS (1)
  - DYSPNOEA [None]
